FAERS Safety Report 8064325-3 (Version None)
Quarter: 2011Q4

REPORT INFORMATION
  Report Type: 
  Country: None (occurrence: None)
  Receive Date: 20111221
  Receipt Date: 20110419
  Transmission Date: 20120403
  Serious: Yes (Hospitalization)
  Sender: FDA-Public Use
  Company Number: PHHY2011US34170

PATIENT
  Age: 24 Year
  Sex: Female
  Weight: 112 kg

DRUGS (1)
  1. EXJADE [Suspect]
     Indication: IRON METABOLISM DISORDER
     Dosage: 500 MG, QD, ORAL
     Route: 048
     Dates: start: 20100511

REACTIONS (1)
  - SICKLE CELL ANAEMIA [None]
